FAERS Safety Report 5183029-8 (Version None)
Quarter: 2006Q4

REPORT INFORMATION
  Report Type: 
  Country: None (occurrence: None)
  Receive Date: 20061220
  Receipt Date: 20051205
  Transmission Date: 20070319
  Serious: No
  Sender: FDA-Public Use
  Company Number: US-GLAXOSMITHKLINE-A0584606A

PATIENT
  Age: 81 Year
  Sex: Female

DRUGS (5)
  1. NICODERM CQ [Suspect]
     Dates: start: 20051030, end: 20051130
  2. NICODERM CQ [Suspect]
  3. WELLBUTRIN [Concomitant]
  4. BLOOD THINNER [Concomitant]
  5. ANTIBIOTIC [Concomitant]

REACTIONS (4)
  - ERYTHEMA [None]
  - NAUSEA [None]
  - PRURITUS [None]
  - RASH [None]
